FAERS Safety Report 9738370 (Version 1)
Quarter: 2013Q4

REPORT INFORMATION
  Report Type: Report from Study
  Country: US (occurrence: US)
  Receive Date: 20131208
  Receipt Date: 20131208
  Transmission Date: 20140711
  Serious: Yes (Death)
  Sender: FDA-Public Use
  Company Number: US-ROCHE-1314992

PATIENT
  Age: 48 Year
  Sex: 0

DRUGS (1)
  1. ZELBORAF [Suspect]
     Indication: MALIGNANT MELANOMA
     Dosage: 2L ZELBORAF DOSE
     Route: 065

REACTIONS (2)
  - Death [Fatal]
  - Fatigue [Unknown]
